FAERS Safety Report 7871179-4 (Version None)
Quarter: 2011Q4

REPORT INFORMATION
  Report Type: 
  Country: None (occurrence: None)
  Receive Date: 20111027
  Receipt Date: 20111017
  Transmission Date: 20120403
  Serious: Yes (Life-Threatening, Hospitalization, Disabling, Other)
  Sender: FDA-Public Use
  Company Number: CRC-11-261

PATIENT
  Age: 70 Year
  Sex: Female

DRUGS (5)
  1. OMEPRAZOLE [Concomitant]
  2. CARBOPLATIN [Suspect]
     Indication: UTERINE CANCER
  3. SENNA [Concomitant]
  4. MOVIPREP [Concomitant]
  5. SCOPOLAMINE [Concomitant]

REACTIONS (2)
  - MANIA [None]
  - DELIRIUM [None]
